FAERS Safety Report 7937917-7 (Version None)
Quarter: 2011Q4

REPORT INFORMATION
  Report Type: 
  Country: None (occurrence: None)
  Receive Date: 20111123
  Receipt Date: 20111114
  Transmission Date: 20120403
  Serious: Yes (Hospitalization)
  Sender: FDA-Public Use
  Company Number: US-BAYER-2011-032399

PATIENT
  Age: 37 Year
  Sex: Female
  Weight: 87.528 kg

DRUGS (4)
  1. YAZ [Suspect]
     Indication: CONTRACEPTION
     Dosage: UNK
     Dates: start: 20061201, end: 20100601
  2. IBUPROFEN [Concomitant]
     Dosage: UNK UNK, PRN
     Route: 048
     Dates: start: 20010101
  3. TRAZODONE HCL [Concomitant]
     Route: 048
  4. PHENERGAN [Concomitant]
     Dosage: UNK
     Route: 048
     Dates: start: 20091227

REACTIONS (10)
  - CHOLECYSTITIS [None]
  - RETCHING [None]
  - PAIN [None]
  - VOMITING [None]
  - DIARRHOEA [None]
  - EPIGASTRIC DISCOMFORT [None]
  - ABDOMINAL PAIN [None]
  - INJURY [None]
  - NAUSEA [None]
  - BILIARY COLIC [None]
